FAERS Safety Report 15165760 (Version 1)
Quarter: 2018Q3

REPORT INFORMATION
  Report Type: Spontaneous
  Country: US (occurrence: US)
  Receive Date: 20180719
  Receipt Date: 20180719
  Transmission Date: 20181010
  Serious: Yes (Other)
  Sender: FDA-Public Use
  Company Number: US-PROCTER+GAMBLE-GS18082545

PATIENT
  Age: 68 Year
  Sex: Male

DRUGS (1)
  1. VICKS VAPORUB [Suspect]
     Active Substance: CAMPHOR (SYNTHETIC)\EUCALYPTUS OIL\MENTHOL
     Dosage: REGULAR USE AT NIGHT, SEVERAL TIMES PER WEEK FOR YEARS
     Route: 045

REACTIONS (10)
  - Lipogranuloma [Unknown]
  - Cough [Unknown]
  - Positron emission tomogram abnormal [Unknown]
  - Exposure via direct contact [Unknown]
  - Computerised tomogram thorax abnormal [Unknown]
  - Hilar lymphadenopathy [Unknown]
  - Pneumonia lipoid [Unknown]
  - Dyspnoea [Unknown]
  - Incorrect route of drug administration [Unknown]
  - Pulmonary mass [Unknown]
